FAERS Safety Report 16402861 (Version 1)
Quarter: 2019Q2

REPORT INFORMATION
  Report Type: Report from Study
  Country: CH (occurrence: CH)
  Receive Date: 20190607
  Receipt Date: 20190607
  Transmission Date: 20190711
  Serious: Yes (Other)
  Sender: FDA-Public Use
  Company Number: CH-ROCHE-2328761

PATIENT

DRUGS (6)
  1. IMATINIB. [Suspect]
     Active Substance: IMATINIB MESYLATE
     Indication: NEOPLASM MALIGNANT
     Dosage: 400, 600, OR 800MG A DAY, EVERY DAY OR TWICE A DAY ON A CONTINUOUS SCHEME
     Route: 048
  2. CAPECITABINE. [Suspect]
     Active Substance: CAPECITABINE
     Indication: NEOPLASM MALIGNANT
     Dosage: 2,000-2,500 MG/M2/DAY TWICE A DAY 2 WEEKS ON/1 WEEK OFF
     Route: 048
  3. LETROZOLE. [Suspect]
     Active Substance: LETROZOLE
     Indication: NEOPLASM MALIGNANT
     Route: 048
  4. SUNITINIB [Suspect]
     Active Substance: SUNITINIB
     Indication: NEOPLASM MALIGNANT
     Dosage: 37.5 MG EVERY DAY ON A CONTINUOUS SCHEME OR 50 MG EVERY DAY 4 WEEKS ON/2 WEEKS OFF
     Route: 048
  5. TEMOZOLOMIDE. [Suspect]
     Active Substance: TEMOZOLOMIDE
     Indication: NEOPLASM MALIGNANT
     Dosage: 75 MG/M2/DAY CONCOMITANTLY TO RADIOTHERAPY OR 250 MG/M2/DAY, 5 DAYS ON/3 WEEKS OFF
     Route: 048
  6. EXEMESTANE. [Suspect]
     Active Substance: EXEMESTANE
     Indication: NEOPLASM MALIGNANT
     Route: 048

REACTIONS (6)
  - Oedema [Unknown]
  - Acute kidney injury [Unknown]
  - Angina unstable [Unknown]
  - Mental disorder [Unknown]
  - Treatment failure [Unknown]
  - Insomnia [Unknown]
